FAERS Safety Report 6064683-5 (Version None)
Quarter: 2009Q1

REPORT INFORMATION
  Report Type: 
  Country: None (occurrence: None)
  Receive Date: 20090204
  Receipt Date: 20080520
  Transmission Date: 20090719
  Serious: No
  Sender: FDA-Public Use
  Company Number: A0728808A

PATIENT
  Age: 53 Year
  Sex: Male

DRUGS (10)
  1. ARIXTRA [Suspect]
     Dosage: 10MG PER DAY
     Route: 058
     Dates: start: 20080516
  2. ADRIAMYCIN PFS [Suspect]
     Dates: start: 20080501
  3. CYTOXAN [Suspect]
     Dates: start: 20080501
  4. DACTINOMYCIN [Suspect]
     Dates: start: 20080501
  5. DIFLUCAN [Suspect]
     Dates: start: 20080516, end: 20080519
  6. VINCRISTINE [Suspect]
     Dates: start: 20080501
  7. CHEMOTHERAPY [Concomitant]
  8. OXYCONTIN [Concomitant]
  9. PERCOCET [Concomitant]
  10. DIFLUCAN [Concomitant]

REACTIONS (1)
  - RASH MACULAR [None]
